FAERS Safety Report 23840831 (Version 2)
Quarter: 2024Q2

REPORT INFORMATION
  Report Type: Spontaneous
  Country: SI (occurrence: SI)
  Receive Date: 20240510
  Receipt Date: 20240516
  Transmission Date: 20240716
  Serious: Yes (Hospitalization)
  Sender: FDA-Public Use
  Company Number: None

PATIENT
  Age: 80 Year
  Sex: Female
  Weight: 59 kg

DRUGS (7)
  1. OFEV [Suspect]
     Active Substance: NINTEDANIB
     Indication: Hypersensitivity pneumonitis
     Route: 048
     Dates: start: 20231028, end: 202404
  2. Asentra 50 MG [Concomitant]
     Indication: Product used for unknown indication
     Dosage: IN THE EMORNING
  3. Sorvasta 20 MG [Concomitant]
     Indication: Product used for unknown indication
     Dosage: IN THE EVENING
  4. Amlessa 8 MG + 5 MG [Concomitant]
     Indication: Product used for unknown indication
     Dosage: STRENGHT: 8 MG/5 MG ?DOSE. IN THE MORNING
  5. Lacipil 4 MG [Concomitant]
     Indication: Product used for unknown indication
     Dosage: IN THE EVENING
  6. Emozul 40 MG [Concomitant]
     Indication: Product used for unknown indication
  7. CODEINE PHOSPHATE 30 mg [Concomitant]
     Indication: Product used for unknown indication
     Dates: start: 20231122

REACTIONS (1)
  - Dyspepsia [Recovering/Resolving]

NARRATIVE: CASE EVENT DATE: 20240301
